FAERS Safety Report 19322277 (Version 2)
Quarter: 2025Q3

REPORT INFORMATION
  Report Type: Spontaneous
  Country: US (occurrence: US)
  Receive Date: 20210528
  Receipt Date: 20250826
  Transmission Date: 20251020
  Serious: No
  Sender: SANOFI AVENTIS
  Company Number: US-SA-SAC20210525000416

PATIENT
  Age: 66 Year
  Sex: Female

DRUGS (3)
  1. DUPIXENT [Suspect]
     Active Substance: DUPILUMAB
     Indication: Dermatitis atopic
     Route: 058
     Dates: start: 202102, end: 202102
  2. DUPIXENT [Suspect]
     Active Substance: DUPILUMAB
     Dosage: 300 MG, QOW
     Route: 058
     Dates: start: 2021
  3. COVID-19 VACCINE [Concomitant]

REACTIONS (5)
  - Peripheral swelling [Unknown]
  - Pruritus [Unknown]
  - Therapeutic response decreased [Unknown]
  - Rash [Unknown]
  - Surgery [Unknown]

NARRATIVE: CASE EVENT DATE: 20210101
